FAERS Safety Report 5412182-3 (Version None)
Quarter: 2007Q3

REPORT INFORMATION
  Report Type: 
  Country: None (occurrence: None)
  Receive Date: 20070713
  Receipt Date: 20070513
  Transmission Date: 20080115
  Serious: No
  Sender: FDA-Public Use
  Company Number: 2007SP001800

PATIENT
  Sex: Male

DRUGS (3)
  1. LUNESTA [Suspect]
     Indication: INSOMNIA
     Dosage: PRN ORAL
     Route: 048
     Dates: start: 20070501
  2. ATORVASTATIN CALCIUM [Concomitant]
  3. BENICAR [Concomitant]

REACTIONS (1)
  - DYSGEUSIA [None]
